FAERS Safety Report 11239597 (Version 2)
Quarter: 2015Q3

REPORT INFORMATION
  Report Type: Spontaneous
  Country: US (occurrence: US)
  Receive Date: 20150706
  Receipt Date: 20150715
  Transmission Date: 20151125
  Serious: No
  Sender: FDA-Public Use
  Company Number: US-PFIZER INC-2015219685

PATIENT
  Sex: Female

DRUGS (1)
  1. LATANOPROST. [Suspect]
     Active Substance: LATANOPROST
     Dosage: UNK
     Dates: start: 2011

REACTIONS (2)
  - Drug intolerance [Unknown]
  - Eye irritation [Unknown]
